FAERS Safety Report 7033956-1 (Version None)
Quarter: 2010Q4

REPORT INFORMATION
  Report Type: 
  Country: None (occurrence: None)
  Receive Date: 20101005
  Receipt Date: 20060206
  Transmission Date: 20110411
  Serious: Yes (Other)
  Sender: FDA-Public Use
  Company Number: 2006_000006

PATIENT
  Age: 42 Year
  Sex: Female

DRUGS (4)
  1. DEPOCYT [Suspect]
     Indication: PROPHYLAXIS
     Dosage: 50 MG; QOW; INTH
     Route: 037
  2. DEXAMETHASONE [Concomitant]
  3. METHOTREXATE [Concomitant]
  4. CYTARABINE [Concomitant]

REACTIONS (7)
  - ARACHNOIDITIS [None]
  - CAUDA EQUINA SYNDROME [None]
  - DRUG INEFFECTIVE [None]
  - FAECAL INCONTINENCE [None]
  - HYPOAESTHESIA [None]
  - RADICULITIS [None]
  - STEM CELL TRANSPLANT [None]
